FAERS Safety Report 9885516 (Version 2)
Quarter: 2014Q1

REPORT INFORMATION
  Report Type: Report from Study
  Country: DE (occurrence: DE)
  Receive Date: 20140210
  Receipt Date: 20140219
  Transmission Date: 20141002
  Serious: Yes (Hospitalization)
  Sender: FDA-Public Use
  Company Number: DE-EISAI INC-E2007-01515-CLI-DE

PATIENT
  Sex: Male
  Weight: 114.7 kg

DRUGS (5)
  1. E2007 (PERAMPANEL) [Suspect]
     Indication: GRAND MAL CONVULSION
     Dosage: CORE STUDY-DOUBLE BLIND
     Route: 048
     Dates: start: 20130710, end: 20131217
  2. E2007 (PERAMPANEL) [Suspect]
     Dosage: OPEN LABEL EXTENSION
     Route: 048
     Dates: start: 20131218
  3. ORFIRIL LONG [Concomitant]
     Route: 048
     Dates: start: 200206
  4. VIMPAT [Concomitant]
     Route: 048
     Dates: start: 201208
  5. SERTRALIN [Concomitant]
     Route: 048
     Dates: start: 20131217

REACTIONS (1)
  - Retinal detachment [Not Recovered/Not Resolved]
